FAERS Safety Report 17390074 (Version 4)
Quarter: 2020Q2

REPORT INFORMATION
  Report Type: Report from Study
  Country: DE (occurrence: DE)
  Receive Date: 20200207
  Receipt Date: 20200430
  Transmission Date: 20200713
  Serious: Yes (Hospitalization, Other)
  Sender: FDA-Public Use
  Company Number: DE-MYLANLABS-2020M1013309

PATIENT
  Sex: Female
  Weight: 61 kg

DRUGS (3)
  1. FULVESTRANT. [Suspect]
     Active Substance: FULVESTRANT
     Indication: BREAST CANCER
     Dosage: 500 MG, QMO (EVERY 4 WEEKS)
     Route: 030
     Dates: start: 20190909
  2. KISQALI [Suspect]
     Active Substance: RIBOCICLIB
     Indication: BREAST CANCER
     Dosage: 600 MG, QD, (DAILYSCHEMA 21 DAYS INTAKE, 7 DAYS PAUSE)
     Route: 048
     Dates: start: 20190909, end: 20200128
  3. KISQALI [Suspect]
     Active Substance: RIBOCICLIB
     Dosage: 600 MG, QD, (DAILYSCHEMA 21 DAYS INTAKE, 7 DAYS PAUSE)
     Route: 048
     Dates: start: 20200224

REACTIONS (7)
  - Rib fracture [Not Recovered/Not Resolved]
  - Cancer pain [Recovering/Resolving]
  - Nausea [Not Recovered/Not Resolved]
  - Metastases to skin [Not Recovered/Not Resolved]
  - Metastases to bone [Not Recovered/Not Resolved]
  - Constipation [Not Recovered/Not Resolved]
  - Metastases to chest wall [Recovered/Resolved]

NARRATIVE: CASE EVENT DATE: 20191106
